FAERS Safety Report 6683508-8 (Version None)
Quarter: 2010Q2

REPORT INFORMATION
  Report Type: 
  Country: None (occurrence: None)
  Receive Date: 20100415
  Receipt Date: 20100309
  Transmission Date: 20101027
  Serious: Yes (Life-Threatening, Hospitalization, Disabling, Other)
  Sender: FDA-Public Use
  Company Number: PR-BAXTER-2008BH007229

PATIENT
  Age: 66 Year
  Sex: Female
  Weight: 63 kg

DRUGS (13)
  1. HEPARIN SODIUM INJECTION [Suspect]
     Indication: CATHETERISATION CARDIAC
     Route: 042
     Dates: start: 20070606, end: 20070606
  2. HEPARIN SODIUM INJECTION [Suspect]
     Indication: CORONARY ARTERY BYPASS
     Route: 042
     Dates: start: 20070606, end: 20070606
  3. HEPARIN SODIUM INJECTION [Suspect]
     Route: 042
     Dates: start: 20070607, end: 20070607
  4. HEPARIN SODIUM INJECTION [Suspect]
     Route: 042
     Dates: start: 20070607, end: 20070607
  5. HEPARIN SODIUM INJECTION [Suspect]
     Route: 042
     Dates: start: 20070609, end: 20070619
  6. HEPARIN SODIUM INJECTION [Suspect]
     Route: 042
     Dates: start: 20070609, end: 20070619
  7. INDERAL [Concomitant]
     Indication: DRUG USE FOR UNKNOWN INDICATION
     Route: 048
  8. SYNTHROID [Concomitant]
     Indication: DRUG USE FOR UNKNOWN INDICATION
     Route: 048
  9. PANADOL [Concomitant]
     Indication: DRUG USE FOR UNKNOWN INDICATION
     Route: 065
  10. ENALAPRIL MALEATE [Concomitant]
     Indication: DRUG USE FOR UNKNOWN INDICATION
     Route: 048
  11. ATORVASTATIN [Concomitant]
     Indication: DRUG USE FOR UNKNOWN INDICATION
     Route: 048
  12. ASPIRIN [Concomitant]
     Indication: DRUG USE FOR UNKNOWN INDICATION
     Route: 048
  13. HYDROCHLOROTHIAZIDE [Concomitant]
     Indication: DRUG USE FOR UNKNOWN INDICATION
     Route: 048

REACTIONS (54)
  - ABDOMINAL DISCOMFORT [None]
  - ABDOMINAL PAIN [None]
  - BLOOD PRESSURE DECREASED [None]
  - BURNING SENSATION [None]
  - CARDIAC FAILURE [None]
  - CHEST PAIN [None]
  - CORONARY ARTERY DISEASE [None]
  - CYANOSIS [None]
  - DIABETES MELLITUS [None]
  - DIARRHOEA [None]
  - DIZZINESS [None]
  - DRUG INEFFECTIVE [None]
  - DYSPEPSIA [None]
  - DYSPHAGIA [None]
  - DYSPNOEA [None]
  - ERYTHEMA [None]
  - EXTREMITY NECROSIS [None]
  - FINGER AMPUTATION [None]
  - FINGER DEFORMITY [None]
  - FOOT AMPUTATION [None]
  - GANGRENE [None]
  - HAEMODIALYSIS [None]
  - HEADACHE [None]
  - HEPARIN-INDUCED THROMBOCYTOPENIA [None]
  - HYPERHIDROSIS [None]
  - HYPERSENSITIVITY [None]
  - HYPOAESTHESIA [None]
  - HYPOTENSION [None]
  - ISCHAEMIA [None]
  - LOSS OF CONSCIOUSNESS [None]
  - MALAISE [None]
  - MYOCARDIAL INFARCTION [None]
  - NAUSEA [None]
  - OEDEMA MOUTH [None]
  - PALLOR [None]
  - PALPITATIONS [None]
  - PARAESTHESIA [None]
  - PERIPHERAL ARTERIAL OCCLUSIVE DISEASE [None]
  - PHARYNGEAL OEDEMA [None]
  - PNEUMONITIS [None]
  - PULMONARY OEDEMA [None]
  - RENAL FAILURE ACUTE [None]
  - RESPIRATORY DISTRESS [None]
  - RESPIRATORY FAILURE [None]
  - RESTLESSNESS [None]
  - SENSORY LOSS [None]
  - SKIN ULCER [None]
  - SWELLING [None]
  - TACHYCARDIA [None]
  - THIRST [None]
  - THROMBOCYTOPENIA [None]
  - TRISMUS [None]
  - ULCER [None]
  - UNRESPONSIVE TO STIMULI [None]
